FAERS Safety Report 5582986-5 (Version None)
Quarter: 2008Q1

REPORT INFORMATION
  Report Type: 
  Country: None (occurrence: None)
  Receive Date: 20080107
  Receipt Date: 20071228
  Transmission Date: 20080703
  Serious: Yes (Life-Threatening, Hospitalization)
  Sender: FDA-Public Use
  Company Number: FR-JNJFOC-20080100103

PATIENT
  Age: 50 Year
  Sex: Female
  Weight: 66 kg

DRUGS (14)
  1. REMICADE [Suspect]
     Route: 042
  2. REMICADE [Suspect]
     Route: 042
  3. REMICADE [Suspect]
     Route: 042
  4. REMICADE [Suspect]
     Route: 042
  5. REMICADE [Suspect]
     Route: 042
  6. REMICADE [Suspect]
     Route: 042
  7. REMICADE [Suspect]
     Indication: RHEUMATOID ARTHRITIS
     Route: 042
  8. ARAVA [Suspect]
     Indication: RHEUMATOID ARTHRITIS
     Route: 048
  9. STAGID [Concomitant]
  10. NOVONORM [Concomitant]
  11. EFFERALGAN CODEINE [Concomitant]
  12. MICROVAL [Concomitant]
  13. CORTANCYL [Concomitant]
     Route: 048
  14. CORTANCYL [Concomitant]
     Route: 048

REACTIONS (6)
  - HEPATIC HAEMORRHAGE [None]
  - HEPATITIS FULMINANT [None]
  - LUPUS HEPATITIS [None]
  - PERITONEAL HAEMORRHAGE [None]
  - SEPSIS [None]
  - VENOUS THROMBOSIS [None]
